FAERS Safety Report 6207346-5 (Version None)
Quarter: 2009Q2

REPORT INFORMATION
  Report Type: 
  Country: None (occurrence: None)
  Receive Date: 20090528
  Receipt Date: 20090518
  Transmission Date: 20091009
  Serious: Yes (Hospitalization)
  Sender: FDA-Public Use
  Company Number: IT-PFIZER INC-2005135652

PATIENT
  Age: 63 Year

DRUGS (2)
  1. SUNITINIB MALATE [Suspect]
     Indication: GASTROINTESTINAL STROMAL TUMOUR
     Dosage: 50 MG, 1X/DAY
     Route: 048
     Dates: start: 20050923, end: 20050924
  2. ANTRA [Concomitant]
     Dosage: UNK
     Route: 048
     Dates: start: 20030101

REACTIONS (2)
  - ANAEMIA [None]
  - MELAENA [None]
